FAERS Safety Report 13051723 (Version 1)
Quarter: 2016Q4

REPORT INFORMATION
  Report Type: Spontaneous
  Country: AT (occurrence: AT)
  Receive Date: 20161221
  Receipt Date: 20161221
  Transmission Date: 20170207
  Serious: Yes (Death, Other)
  Sender: FDA-Public Use
  Company Number: AT-JNJFOC-20161217279

PATIENT

DRUGS (2)
  1. DACLATASVIR. [Suspect]
     Active Substance: DACLATASVIR
     Indication: HEPATITIS C
     Route: 065
  2. SIMEPREVIR [Suspect]
     Active Substance: SIMEPREVIR
     Indication: HEPATITIS C
     Route: 065

REACTIONS (9)
  - Liver disorder [Fatal]
  - Hepatocellular carcinoma [Unknown]
  - Off label use [Unknown]
  - Ascites [Unknown]
  - Adverse event [Fatal]
  - Hepatic encephalopathy [Unknown]
  - Haemorrhage [Unknown]
  - Thrombosis [Fatal]
  - Hepatic cirrhosis [Unknown]
